FAERS Safety Report 9898877 (Version 2)
Quarter: 2014Q1

REPORT INFORMATION
  Report Type: Spontaneous
  Country: PL (occurrence: PL)
  Receive Date: 20140214
  Receipt Date: 20140214
  Transmission Date: 20141002
  Serious: No
  Sender: FDA-Public Use
  Company Number: PL-LUNDBECK-DKLU1096149

PATIENT
  Age: 35 Year
  Sex: Female

DRUGS (10)
  1. SABRIL (TABLET) [Suspect]
     Indication: EPILEPSY
  2. VALPROIC ACID [Suspect]
     Indication: EPILEPSY
  3. LEVETIRACETAM [Suspect]
     Indication: EPILEPSY
  4. LEVETIRACETAM [Suspect]
     Indication: NEUROSIS
  5. LEVETIRACETAM [Suspect]
     Indication: DEPRESSION
  6. OXCARBAZEPINE [Suspect]
     Indication: EPILEPSY
  7. LAMOTRIGINE [Suspect]
     Indication: EPILEPSY
  8. TOPIRAMATE [Suspect]
     Indication: EPILEPSY
  9. CARBAMAZEPINE [Suspect]
     Indication: EPILEPSY
  10. GABAPENTIN [Suspect]
     Indication: EPILEPSY

REACTIONS (2)
  - Mental disorder [Recovering/Resolving]
  - Drug ineffective [Unknown]
